FAERS Safety Report 4657791-4 (Version None)
Quarter: 2005Q2

REPORT INFORMATION
  Report Type: 
  Country: None (occurrence: None)
  Receive Date: 20050510
  Receipt Date: 20050329
  Transmission Date: 20051028
  Serious: Yes (Life-Threatening, Hospitalization, Disabling)
  Sender: FDA-Public Use
  Company Number: US-MERCK-0503USA05118

PATIENT
  Age: 75 Year
  Sex: Female

DRUGS (3)
  1. SINGULAIR [Suspect]
     Indication: NASOPHARYNGITIS
     Route: 048
     Dates: start: 20050301, end: 20050301
  2. SINGULAIR [Suspect]
     Indication: RHINITIS ALLERGIC
     Route: 048
     Dates: start: 20050301, end: 20050301
  3. TOPROL-XL [Concomitant]
     Route: 065

REACTIONS (2)
  - ATRIAL FIBRILLATION [None]
  - PALPITATIONS [None]
